FAERS Safety Report 19353107 (Version 2)
Quarter: 2021Q3

REPORT INFORMATION
  Report Type: Report from Study
  Country: BR (occurrence: BR)
  Receive Date: 20210531
  Receipt Date: 20210720
  Transmission Date: 20211014
  Serious: Yes (Other)
  Sender: FDA-Public Use
  Company Number: NVSC2021BR115656

PATIENT
  Age: 62 Year
  Sex: Female
  Weight: 69 kg

DRUGS (5)
  1. ATACAND [Concomitant]
     Active Substance: CANDESARTAN CILEXETIL
     Indication: BLOOD PRESSURE MEASUREMENT
     Dosage: UNK UNK, QD
     Route: 048
  2. GLIFAGE [Concomitant]
     Active Substance: METFORMIN HYDROCHLORIDE
     Indication: DIABETES MELLITUS
     Dosage: UNK UNK, QD
     Route: 048
  3. KISQALI [Suspect]
     Active Substance: RIBOCICLIB
     Indication: PRODUCT USED FOR UNKNOWN INDICATION
     Dosage: UNK
     Route: 048
     Dates: start: 20210324
  4. CRESTOR [Concomitant]
     Active Substance: ROSUVASTATIN CALCIUM
     Indication: BLOOD CHOLESTEROL
     Dosage: UNK UNK, QD
     Route: 048
  5. ANASTROZOLE. [Suspect]
     Active Substance: ANASTROZOLE
     Indication: HORMONE LEVEL ABNORMAL
     Dosage: UNK UNK, QD
     Route: 048

REACTIONS (16)
  - Gastrooesophageal reflux disease [Recovered/Resolved]
  - Weight decreased [Not Recovered/Not Resolved]
  - Renal impairment [Unknown]
  - Feeling abnormal [Unknown]
  - Nausea [Recovered/Resolved]
  - Diarrhoea [Recovered/Resolved]
  - Feeding disorder [Unknown]
  - Dehydration [Unknown]
  - Blood creatine increased [Not Recovered/Not Resolved]
  - Eructation [Unknown]
  - Dysphagia [Unknown]
  - Dyspepsia [Unknown]
  - Malaise [Recovered/Resolved]
  - Abdominal distension [Recovered/Resolved]
  - Blood urea increased [Recovered/Resolved]
  - Throat irritation [Recovered/Resolved]

NARRATIVE: CASE EVENT DATE: 20210510
